FAERS Safety Report 22602812 (Version 2)
Quarter: 2023Q4

REPORT INFORMATION
  Report Type: Report from Study
  Country: US (occurrence: US)
  Receive Date: 20230615
  Receipt Date: 20231213
  Transmission Date: 20240109
  Serious: Yes (Other)
  Sender: FDA-Public Use
  Company Number: US-ABBVIE-5290460

PATIENT
  Sex: Female

DRUGS (1)
  1. IMBRUVICA [Suspect]
     Active Substance: IBRUTINIB
     Indication: Chronic lymphocytic leukaemia
     Dosage: FOR 6 DAYS
     Route: 048
     Dates: start: 202108

REACTIONS (6)
  - Dental implantation [Unknown]
  - Crying [Unknown]
  - Muscle spasms [Unknown]
  - Migraine [Unknown]
  - Emotional disorder [Unknown]
  - Insomnia [Unknown]
